FAERS Safety Report 4349183-2 (Version None)
Quarter: 2004Q2

REPORT INFORMATION
  Report Type: 
  Country: None (occurrence: None)
  Receive Date: 20040427
  Receipt Date: 20030625
  Transmission Date: 20050107
  Serious: Yes (Other)
  Sender: FDA-Public Use
  Company Number: 000577

PATIENT
  Age: 51 Year
  Sex: Female

DRUGS (4)
  1. ZEVALIN [Suspect]
     Indication: NON-HODGKIN'S LYMPHOMA
     Dosage: 525 MG/M2, SINGLE, RITUXAN DOSE1, INJECTION
     Dates: start: 20030625, end: 20030625
  2. BENADRYL ^WARNER-LAMBERT^ /USA/(DIPHENHYDRAMINE HYDROCHLORIDE) [Concomitant]
  3. TYLENOL [Concomitant]
  4. HYDROCORTISONE [Concomitant]

REACTIONS (1)
  - HYPERSENSITIVITY [None]
